FAERS Safety Report 7493741-3 (Version None)
Quarter: 2011Q2

REPORT INFORMATION
  Report Type: 
  Country: None (occurrence: None)
  Receive Date: 20110520
  Receipt Date: 20110509
  Transmission Date: 20111010
  Serious: Yes (Hospitalization)
  Sender: FDA-Public Use
  Company Number: DE-SANOFI-AVENTIS-2010SA056039

PATIENT
  Age: 74 Year
  Sex: Female

DRUGS (14)
  1. EUTHYROX [Concomitant]
  2. SIMVASTATIN [Concomitant]
  3. ENALAPRIL MALEATE [Concomitant]
  4. LEUCOVORIN CALCIUM [Suspect]
     Route: 042
     Dates: start: 20100824, end: 20100824
  5. ACETYL SALICYLIC ACID USP BAT [Concomitant]
  6. OXALIPLATIN [Suspect]
     Route: 042
     Dates: start: 20100824, end: 20100824
  7. BEVACIZUMAB [Suspect]
     Route: 042
     Dates: start: 20100907, end: 20100907
  8. FLUOROURACIL [Suspect]
     Route: 042
     Dates: start: 20100824, end: 20100824
  9. LEUCOVORIN CALCIUM [Suspect]
     Route: 042
     Dates: start: 20100907, end: 20100907
  10. BEVACIZUMAB [Suspect]
     Route: 042
     Dates: start: 20100824, end: 20100824
  11. PREDNISONE [Concomitant]
  12. OXALIPLATIN [Suspect]
     Route: 042
     Dates: start: 20100907, end: 20100907
  13. FLUOROURACIL [Suspect]
     Route: 042
     Dates: start: 20100907, end: 20100907
  14. BISOPROLOL FUMARATE [Concomitant]

REACTIONS (2)
  - TRANSIENT ISCHAEMIC ATTACK [None]
  - HYPERSENSITIVITY [None]
